FAERS Safety Report 7884379-4 (Version None)
Quarter: 2011Q4

REPORT INFORMATION
  Report Type: 
  Country: None (occurrence: None)
  Receive Date: 20111102
  Receipt Date: 20111024
  Transmission Date: 20120403
  Serious: Yes (Death)
  Sender: FDA-Public Use
  Company Number: CA-ROCHE-1007111

PATIENT
  Sex: Female
  Weight: 154.81 kg

DRUGS (4)
  1. LOMUSTINE [Concomitant]
  2. TYLENOL-500 [Concomitant]
  3. DEXAMETHASONE [Concomitant]
  4. AVASTIN [Suspect]
     Indication: GLIOBLASTOMA
     Route: 042
     Dates: start: 20110829, end: 20110919

REACTIONS (1)
  - DEATH [None]
